FAERS Safety Report 5621977-2 (Version None)
Quarter: 2008Q1

REPORT INFORMATION
  Report Type: 
  Country: None (occurrence: None)
  Receive Date: 20080211
  Receipt Date: 20080131
  Transmission Date: 20080703
  Serious: Yes (Hospitalization)
  Sender: FDA-Public Use
  Company Number: B0507011A

PATIENT

DRUGS (1)
  1. MELPHALAN [Suspect]
     Indication: BONE MARROW TRANSPLANT
     Dosage: 480MG PER DAY
     Route: 042
     Dates: start: 20070301

REACTIONS (3)
  - BLOOD PRESSURE DECREASED [None]
  - CARDIAC OUTPUT DECREASED [None]
  - CARDIOGENIC SHOCK [None]
